FAERS Safety Report 20733514 (Version 3)
Quarter: 2022Q2

REPORT INFORMATION
  Report Type: Report from Study
  Country: US (occurrence: US)
  Receive Date: 20220421
  Receipt Date: 20220530
  Transmission Date: 20220721
  Serious: Yes (Hospitalization, Other)
  Sender: FDA-Public Use
  Company Number: US-JNJFOC-20220436541

PATIENT
  Age: 73 Year
  Sex: Female

DRUGS (1)
  1. MACITENTAN [Suspect]
     Active Substance: MACITENTAN
     Indication: Pulmonary arterial hypertension
     Dosage: AT NOON
     Route: 048
     Dates: start: 202204, end: 20220506

REACTIONS (4)
  - Oxygen saturation decreased [Not Recovered/Not Resolved]
  - Atypical pneumonia [Unknown]
  - Haemoglobin decreased [Not Recovered/Not Resolved]
  - Peripheral swelling [Not Recovered/Not Resolved]

NARRATIVE: CASE EVENT DATE: 20220401
